FAERS Safety Report 8762542 (Version 1)
Quarter: 2012Q4

REPORT INFORMATION
  Report Type: 
  Country: JP (occurrence: JP)
  Receive Date: 20120829
  Receipt Date: 20120829
  Transmission Date: 20130627
  Serious: Yes (Other)
  Sender: FDA-Public Use
  Company Number: JP-PFIZER INC-2012210419

PATIENT
  Age: 71 Year
  Sex: Female

DRUGS (1)
  1. JZOLOFT [Suspect]
     Dosage: UNK
     Route: 048

REACTIONS (3)
  - Inappropriate antidiuretic hormone secretion [Unknown]
  - Pollakiuria [Unknown]
  - Nocturia [Unknown]
